FAERS Safety Report 4396598-2 (Version None)
Quarter: 2004Q3

REPORT INFORMATION
  Report Type: 
  Country: None (occurrence: None)
  Receive Date: 20040713
  Receipt Date: 20040713
  Transmission Date: 20050211
  Serious: Yes (Other)
  Sender: FDA-Public Use
  Company Number: None

PATIENT
  Age: 4 Month
  Sex: Male
  Weight: 6.3504 kg

DRUGS (1)
  1. BAY GAM (HUMAN IMMUNE GLOBULIN) BY BAYER [Suspect]
     Indication: EXPOSURE TO COMMUNICABLE DISEASE
     Dosage: .15 IM LEFT LEG  ONE DOSE ONLY
     Route: 030

REACTIONS (1)
  - URTICARIA GENERALISED [None]
